FAERS Safety Report 7122893-X (Version None)
Quarter: 2010Q4

REPORT INFORMATION
  Report Type: 
  Country: None (occurrence: None)
  Receive Date: 20101124
  Receipt Date: 20101119
  Transmission Date: 20110411
  Serious: Yes (Other)
  Sender: FDA-Public Use
  Company Number: BE-ABBOTT-10P-013-0686514-00

PATIENT
  Sex: Female

DRUGS (6)
  1. HUMIRA [Suspect]
     Indication: ANKYLOSING SPONDYLITIS
     Dates: start: 20101029
  2. KEPPRA [Concomitant]
     Indication: EPILEPSY
  3. LAMICTAL [Concomitant]
     Indication: EPILEPSY
     Dosage: 175MG DAILY
  4. TRILEPTAL [Concomitant]
     Indication: EPILEPSY
     Dosage: 3 TABLETS DAILY
  5. SALAZOPYRINE [Concomitant]
     Indication: ANKYLOSING SPONDYLITIS
     Dosage: 4 TABLETS DAILY
  6. PIROMED [Concomitant]
     Indication: ANKYLOSING SPONDYLITIS
     Dosage: 20MG DAILY

REACTIONS (2)
  - COMA [None]
  - GRAND MAL CONVULSION [None]
